FAERS Safety Report 8533726-9 (Version None)
Quarter: 2012Q3

REPORT INFORMATION
  Report Type: 
  Country: None (occurrence: None)
  Receive Date: 20120724
  Receipt Date: 20120717
  Transmission Date: 20120928
  Serious: Yes (Hospitalization, Disabling, Other)
  Sender: FDA-Public Use
  Company Number: US-CELGENEUS-163-21880-12033541

PATIENT
  Sex: Male

DRUGS (28)
  1. ZOMETA [Suspect]
     Route: 065
     Dates: start: 20110101, end: 20111201
  2. CHLORHEXIDINE GLUCONATE [Concomitant]
     Route: 065
  3. ALPRAZOLAM [Concomitant]
     Indication: ANXIETY
     Dosage: 1-2 TABLETS
     Route: 048
     Dates: start: 20120306
  4. METOPROLOL SUCCINATE [Concomitant]
     Dosage: 100 MILLIGRAM
     Route: 048
     Dates: start: 20111228
  5. AMLODIPINE [Concomitant]
     Route: 065
  6. PANTOPRAZOLE [Concomitant]
     Dosage: 40 MILLIGRAM
     Route: 048
     Dates: start: 20120307
  7. LIDOCAINE [Concomitant]
     Indication: PAIN
     Dosage: 5 MILLILITER
     Route: 048
     Dates: start: 20120306
  8. NITROFURANTOIN [Concomitant]
     Dosage: 100 MILLIGRAM
     Route: 048
  9. XANAX [Concomitant]
     Route: 065
  10. SODIUM CHLORIDE [Concomitant]
     Dosage: 1 TABLET
     Route: 065
  11. MACROBID [Concomitant]
     Route: 065
  12. LIDOCAINE [Concomitant]
     Indication: OSTEONECROSIS OF JAW
  13. ACYCLOVIR [Concomitant]
     Dosage: 400 MILLIGRAM
     Route: 048
     Dates: start: 20111228
  14. TRIAMCINOLONE ACETONIDE [Concomitant]
     Dosage: .1 PERCENT
     Route: 061
     Dates: start: 20110913
  15. MULTI-VITAMINS [Concomitant]
     Dosage: 1 TABLET
     Route: 048
     Dates: start: 20090818
  16. IBUPROFEN [Concomitant]
     Route: 065
  17. CELEXA [Concomitant]
     Route: 065
  18. POTASSIUM CHLORIDE [Concomitant]
     Dosage: 10 MILLIEQUIVALENTS
     Route: 048
  19. IMODIUM [Concomitant]
     Route: 065
  20. REVLIMID [Suspect]
     Dosage: 25 MILLIGRAM
     Route: 048
     Dates: start: 20110111, end: 20110405
  21. GABAPENTIN [Concomitant]
     Dosage: 300 MILLIGRAM
     Route: 048
     Dates: start: 20111228
  22. CITALOPRAM [Concomitant]
     Dosage: 20 MILLIGRAM
     Route: 048
     Dates: start: 20111228
  23. REVLIMID [Suspect]
     Dosage: 10 MILLIGRAM
     Route: 048
     Dates: start: 20110401, end: 20120301
  24. PENICILLIN V POTASSIUM [Concomitant]
     Indication: OSTEONECROSIS OF JAW
     Dosage: 500 MILLIGRAM
     Route: 048
     Dates: start: 20120306
  25. ASPIRIN [Concomitant]
     Dosage: 325 MILLIGRAM
     Route: 048
  26. GUAIFENESIN [Concomitant]
     Dosage: 600 MILLIGRAM
     Route: 048
     Dates: start: 20101214
  27. OXYCODONE/ACETAMINOPHEN [Concomitant]
     Route: 065
  28. FENTANYL [Concomitant]
     Dosage: 25 MICROGRAM
     Route: 062

REACTIONS (7)
  - ASTHENIA [None]
  - OSTEONECROSIS OF JAW [None]
  - NAUSEA [None]
  - DIARRHOEA [None]
  - HYPONATRAEMIA [None]
  - VOMITING [None]
  - PANCYTOPENIA [None]
